FAERS Safety Report 6204871-8 (Version None)
Quarter: 2009Q2

REPORT INFORMATION
  Report Type: 
  Country: None (occurrence: None)
  Receive Date: 20090527
  Receipt Date: 20090512
  Transmission Date: 20091009
  Serious: Yes (Death, Hospitalization, Disabling, Other)
  Sender: FDA-Public Use
  Company Number: PL-GENENTECH-282508

PATIENT
  Sex: Female

DRUGS (5)
  1. MABTHERA [Suspect]
     Indication: ANGIOCENTRIC LYMPHOMA
     Route: 065
  2. CYCLOPHOSPHAMIDE [Concomitant]
     Indication: DRUG USE FOR UNKNOWN INDICATION
  3. DOXORUBICIN HCL [Concomitant]
     Indication: DRUG USE FOR UNKNOWN INDICATION
  4. VINCRISTINE [Concomitant]
     Indication: DRUG USE FOR UNKNOWN INDICATION
  5. PREDNISONE [Concomitant]
     Indication: DRUG USE FOR UNKNOWN INDICATION

REACTIONS (20)
  - BALANCE DISORDER [None]
  - CATARACT [None]
  - GAIT DISTURBANCE [None]
  - HAND FRACTURE [None]
  - LEUKOPENIA [None]
  - LUNG DISORDER [None]
  - MONOCYTE COUNT INCREASED [None]
  - MULTI-ORGAN FAILURE [None]
  - NERVE INJURY [None]
  - NERVOUS SYSTEM DISORDER [None]
  - NIGHT SWEATS [None]
  - PLEURAL FIBROSIS [None]
  - POLYNEUROPATHY [None]
  - PROGRESSIVE MULTIFOCAL LEUKOENCEPHALOPATHY [None]
  - PULMONARY FIBROSIS [None]
  - SPLENOMEGALY [None]
  - THYROID NEOPLASM [None]
  - URINARY INCONTINENCE [None]
  - WEIGHT DECREASED [None]
  - WHITE BLOOD CELL COUNT INCREASED [None]
